FAERS Safety Report 18321647 (Version 2)
Quarter: 2020Q4

REPORT INFORMATION
  Report Type: Spontaneous
  Country: IT (occurrence: IT)
  Receive Date: 20200929
  Receipt Date: 20201006
  Transmission Date: 20210113
  Serious: Yes (Life-Threatening, Hospitalization, Other)
  Sender: FDA-Public Use
  Company Number: IT-LUPIN PHARMACEUTICALS INC.-2020-06519

PATIENT
  Age: 73 Year
  Sex: Female

DRUGS (1)
  1. QUETIAPINE FUMARATE EXTENDED-RELEASE TABLETS, 400 MG [Suspect]
     Active Substance: QUETIAPINE FUMARATE
     Indication: PRODUCT USED FOR UNKNOWN INDICATION
     Dosage: 120 DOSAGE FORM (INGESTION OF 120 EXTENDED RELEASE PILLS)
     Route: 048

REACTIONS (8)
  - Toxicity to various agents [Recovering/Resolving]
  - Intentional overdose [Unknown]
  - Gastric perforation [Recovering/Resolving]
  - Bezoar [Recovered/Resolved]
  - Tachycardia [Recovering/Resolving]
  - Electrocardiogram QT prolonged [Unknown]
  - Coma [Recovering/Resolving]
  - Hypotension [Recovering/Resolving]
